FAERS Safety Report 9519436 (Version 2)
Quarter: 2013Q4

REPORT INFORMATION
  Report Type: Spontaneous
  Country: US (occurrence: US)
  Receive Date: 20130912
  Receipt Date: 20131202
  Transmission Date: 20140711
  Serious: Yes (Death, Life-Threatening, Hospitalization, Disabling, Other)
  Sender: FDA-Public Use
  Company Number: US-GLAXOSMITHKLINE-A1041212A

PATIENT
  Age: 64 Year
  Sex: Female

DRUGS (1)
  1. TYKERB [Suspect]
     Indication: BREAST CANCER
     Dosage: 250MG PER DAY
     Route: 065
     Dates: start: 20130830

REACTIONS (6)
  - Multi-organ failure [Fatal]
  - Neoplasm malignant [Fatal]
  - Cardiopulmonary failure [Fatal]
  - Pulmonary hypertension [Unknown]
  - Hypoxia [Unknown]
  - Hepatic function abnormal [Unknown]
